FAERS Safety Report 24863557 (Version 1)
Quarter: 2025Q1

REPORT INFORMATION
  Report Type: Spontaneous
  Country: US (occurrence: US)
  Receive Date: 20250120
  Receipt Date: 20250120
  Transmission Date: 20250409
  Serious: Yes (Death, Hospitalization)
  Sender: PFIZER
  Company Number: US-PFIZER INC-202500013003

PATIENT
  Age: 73 Year
  Sex: Female

DRUGS (11)
  1. GLIPIZIDE [Suspect]
     Active Substance: GLIPIZIDE
     Route: 048
  2. PANTOPRAZOLE [Suspect]
     Active Substance: PANTOPRAZOLE
     Route: 048
  3. METFORMIN [Suspect]
     Active Substance: METFORMIN HYDROCHLORIDE
     Route: 048
  4. AMLODIPINE [Suspect]
     Active Substance: AMLODIPINE BESYLATE
     Route: 048
  5. LITHIUM [Suspect]
     Active Substance: LITHIUM
     Route: 048
  6. LOSARTAN [Suspect]
     Active Substance: LOSARTAN
     Route: 048
  7. CELECOXIB [Suspect]
     Active Substance: CELECOXIB
     Route: 048
  8. PREGABALIN [Suspect]
     Active Substance: PREGABALIN
     Route: 048
  9. SITAGLIPTIN [Suspect]
     Active Substance: SITAGLIPTIN
     Route: 048
  10. ROSUVASTATIN [Suspect]
     Active Substance: ROSUVASTATIN
     Route: 048
  11. ASPIRIN [Suspect]
     Active Substance: ASPIRIN
     Route: 048

REACTIONS (1)
  - Death [Fatal]

NARRATIVE: CASE EVENT DATE: 20230101
